FAERS Safety Report 16985729 (Version 1)
Quarter: 2019Q4

REPORT INFORMATION
  Report Type: Spontaneous
  Country: US (occurrence: US)
  Receive Date: 20191031
  Receipt Date: 20191031
  Transmission Date: 20200122
  Serious: Yes (Other)
  Sender: FDA-Public Use
  Company Number: None

PATIENT
  Age: 51 Year
  Sex: Female
  Weight: 58.5 kg

DRUGS (5)
  1. PICATO [Suspect]
     Active Substance: INGENOL MEBUTATE
     Indication: PRECANCEROUS SKIN LESION
     Dosage: ?          OTHER STRENGTH:TUBE;QUANTITY:3 LITTLE TUBE;?
     Route: 061
     Dates: start: 20191025, end: 20191027
  2. COLACE 200MG [Concomitant]
  3. NORCO 7.25/3.25 [Concomitant]
  4. TRI-LUMA [Suspect]
     Active Substance: FLUOCINOLONE ACETONIDE\HYDROQUINONE\TRETINOIN
     Indication: SOLAR LENTIGO
     Dosage: ?          OTHER STRENGTH:TUBE;QUANTITY:1 TUBE;?
     Route: 061
     Dates: start: 20191025, end: 20191027
  5. PICATO [Suspect]
     Active Substance: INGENOL MEBUTATE

REACTIONS (7)
  - Myalgia [None]
  - Hyperhidrosis [None]
  - Product storage error [None]
  - Constipation [None]
  - Palpitations [None]
  - Middle insomnia [None]
  - Dizziness [None]

NARRATIVE: CASE EVENT DATE: 20191025
